FAERS Safety Report 9871364 (Version 1)
Quarter: 2014Q1

REPORT INFORMATION
  Report Type: Spontaneous
  Country: CA (occurrence: CA)
  Receive Date: 20140205
  Receipt Date: 20140205
  Transmission Date: 20141002
  Serious: Yes (Hospitalization)
  Sender: FDA-Public Use
  Company Number: PHHY2014CA014154

PATIENT
  Age: 71 Year
  Sex: Male

DRUGS (21)
  1. ACLASTA [Suspect]
     Dosage: 5 MG, UNK
     Route: 042
  2. APO-CYCLOBENZAPRINE [Concomitant]
     Dosage: UNK UKN, UNK
  3. APO ESOMEPRAZOLE [Concomitant]
     Dosage: UNK UKN, UNK
  4. ASA [Concomitant]
     Dosage: UNK UKN, UNK
  5. HYDROMORPHONE [Concomitant]
     Dosage: UNK UKN, UNK
  6. ATIVAN [Concomitant]
     Dosage: UNK UKN, UNK
  7. CARBOCAL D [Concomitant]
     Dosage: UNK UKN, UNK
  8. CO DILTIAZEM CD [Concomitant]
     Dosage: UNK UKN, UNK
  9. DICYCLOMINE HYDROCHLORIDE [Concomitant]
     Dosage: UNK UKN, UNK
  10. FLOVENT [Concomitant]
     Dosage: UNK UKN, UNK
  11. METHOTREXATE [Concomitant]
     Dosage: UNK UKN, UNK
  12. MOBICOX [Concomitant]
     Dosage: UNK UKN, UNK
  13. MYOCHRYSINE [Concomitant]
     Dosage: UNK UKN, UNK
     Route: 030
  14. NIASPAN [Concomitant]
     Dosage: UNK UKN, UNK
  15. NOVO-SALMOL [Concomitant]
     Dosage: UNK UKN, UNK
  16. PMS-IPRATROPIUM [Concomitant]
     Dosage: UNK UKN, UNK
  17. ROSUVASTATIN [Concomitant]
     Dosage: UNK UKN, UNK
  18. LATANOPROST SANDOZ [Concomitant]
     Dosage: UNK UKN, UNK
     Route: 047
  19. SYSTANE LUBRICANT [Concomitant]
     Dosage: UNK UKN, UNK
     Route: 047
  20. VALSARTAN [Concomitant]
     Dosage: UNK UKN, UNK
  21. VITALUX                            /00322001/ [Concomitant]
     Dosage: UNK UKN, UNK

REACTIONS (8)
  - Hypokalaemia [Unknown]
  - Hyponatraemia [Unknown]
  - Metabolic acidosis [Unknown]
  - Confusional state [Unknown]
  - General physical health deterioration [Unknown]
  - Renal failure acute [Unknown]
  - Blood creatinine increased [Unknown]
  - Asthenia [Unknown]
